FAERS Safety Report 8594490-0 (Version None)
Quarter: 2012Q3

REPORT INFORMATION
  Report Type: 
  Country: None (occurrence: None)
  Receive Date: 20120801
  Receipt Date: 20120726
  Transmission Date: 20120928
  Serious: Yes (Other)
  Sender: FDA-Public Use
  Company Number: A0987260A

PATIENT
  Age: 56 Year
  Sex: Female

DRUGS (9)
  1. INTERFERON BETA-1A [Suspect]
     Indication: MULTIPLE SCLEROSIS
     Dosage: 44 MCG THREE TIMES PER WEEK / SUBC
     Route: 058
     Dates: start: 20031017
  2. ATENOLOL [Suspect]
  3. ALPRAZOLAM [Concomitant]
  4. CLOPIDOGREL BISULFATE [Suspect]
     Dosage: ORAL
     Route: 048
  5. ASPIRIN [Suspect]
     Indication: PRODUCT USED FOR UNKNOWN INDICATION
  6. BUPROPION HYDROCHLORIDE [Concomitant]
  7. PRINZIDE [Concomitant]
  8. PROPRANOLOL [Suspect]
  9. DIAZEPAM [Concomitant]

REACTIONS (6)
  - HEAD INJURY [None]
  - DYSGRAPHIA [None]
  - HEADACHE [None]
  - GAIT DISTURBANCE [None]
  - NAUSEA [None]
  - FALL [None]
